FAERS Safety Report 7645173-2 (Version None)
Quarter: 2011Q3

REPORT INFORMATION
  Report Type: 
  Country: None (occurrence: None)
  Receive Date: 20110729
  Receipt Date: 20110719
  Transmission Date: 20111222
  Serious: Yes (Hospitalization)
  Sender: FDA-Public Use
  Company Number: US-JNJFOC-20110708297

PATIENT
  Sex: Female
  Weight: 50.8 kg

DRUGS (5)
  1. REMICADE [Suspect]
     Route: 042
     Dates: start: 20110701
  2. REMICADE [Suspect]
     Indication: CROHN'S DISEASE
     Route: 042
     Dates: start: 20100624
  3. BENADRYL [Suspect]
     Indication: PRURITUS
     Route: 065
     Dates: start: 20100101
  4. LEXAPRO [Concomitant]
     Indication: ANXIETY
     Route: 048
  5. BENADRYL [Suspect]
     Route: 065

REACTIONS (6)
  - PYREXIA [None]
  - HYPERSENSITIVITY [None]
  - BLOOD COUNT ABNORMAL [None]
  - CROHN'S DISEASE [None]
  - THROAT TIGHTNESS [None]
  - PRURITUS GENERALISED [None]
